FAERS Safety Report 20207692 (Version 3)
Quarter: 2022Q1

REPORT INFORMATION
  Report Type: Spontaneous
  Country: CH (occurrence: CH)
  Receive Date: 20211220
  Receipt Date: 20220118
  Transmission Date: 20220423
  Serious: Yes (Death, Hospitalization, Other)
  Sender: FDA-Public Use
  Company Number: CH-PFIZER INC-202101777225

PATIENT
  Age: 81 Year
  Sex: Male
  Weight: 72 kg

DRUGS (14)
  1. VYNDAQEL [Suspect]
     Active Substance: TAFAMIDIS MEGLUMINE
     Indication: Cardiac amyloidosis
     Dosage: 61 MG, 1X/DAY
     Route: 048
     Dates: start: 20190827
  2. VYNDAQEL [Suspect]
     Active Substance: TAFAMIDIS MEGLUMINE
     Indication: Amyloidosis
  3. DOMPERIDONE [Concomitant]
     Active Substance: DOMPERIDONE
     Dosage: 10 MG, 1X/DAY (AS NEEDED)
  4. SODIUM PICOSULFATE [Concomitant]
     Active Substance: SODIUM PICOSULFATE
     Dosage: UNK, AS NEEDED
  5. SODIUM BICARBONATE [Concomitant]
     Active Substance: SODIUM BICARBONATE
     Dosage: UNK, 1X/DAY
  6. PANTOPRAZOL SPIRIG [Concomitant]
     Indication: Dyspepsia
     Dosage: UNK, AS NEEDED
  7. ELIQUIS [Concomitant]
     Active Substance: APIXABAN
     Dosage: 2.5 MG, 2X/DAY (1-0-1-0)
  8. ALDACTONE [Concomitant]
     Active Substance: SPIRONOLACTONE
     Dosage: 100 MG (1.5-0-0-0)
  9. TORSEMIDE [Concomitant]
     Active Substance: TORSEMIDE
     Dosage: 0.5 DF (0.5-0-0-0)
  10. NOVALGIN (METAMIZOLE SODIUM) [Concomitant]
     Active Substance: METAMIZOLE SODIUM
     Dosage: 500 MG, 2X/DAY (0-1-1-0)
  11. QUETIAPINE FUMARATE [Concomitant]
     Active Substance: QUETIAPINE FUMARATE
     Dosage: 25 MG, AS NEEDED 20H (0-0-1-0)
     Dates: start: 20210909
  12. NALOXONE HYDROCHLORIDE\OXYCODONE HYDROCHLORIDE [Concomitant]
     Active Substance: NALOXONE HYDROCHLORIDE\OXYCODONE HYDROCHLORIDE
     Dosage: 1 DF, AS NEEDED (1-0-1-0)
  13. VALVERDE SCHLAF [Concomitant]
     Indication: Insomnia
     Dosage: UNK, AS NEEDED
  14. CETIRIZIN SPIRIG [Concomitant]
     Dosage: 10 MG, AS NEEDED (0-1-0-0)

REACTIONS (35)
  - Renal failure [Fatal]
  - Cardiac failure [Fatal]
  - Delirium [Unknown]
  - Conduction disorder [Unknown]
  - Tricuspid valve incompetence [Unknown]
  - Ascites [Unknown]
  - Cardiac failure acute [Unknown]
  - Aortic valve incompetence [Unknown]
  - Mitral valve incompetence [Unknown]
  - Myocardial infarction [Unknown]
  - Coronary artery disease [Unknown]
  - Coronary artery occlusion [Unknown]
  - Coronary artery stenosis [Unknown]
  - Peritonitis bacterial [Unknown]
  - Cardiomegaly [Unknown]
  - Pulmonary congestion [Unknown]
  - Ventricular hypokinesia [Unknown]
  - Nephrogenic anaemia [Unknown]
  - Microcytic anaemia [Unknown]
  - Iron deficiency anaemia [Unknown]
  - Diarrhoea [Unknown]
  - Left ventricular hypertrophy [Unknown]
  - Diastolic dysfunction [Unknown]
  - Left atrial dilatation [Unknown]
  - Pulmonary arterial pressure increased [Unknown]
  - Right atrial dilatation [Unknown]
  - Hepatic cyst [Unknown]
  - Hepatic vein dilatation [Unknown]
  - Splenomegaly [Unknown]
  - Pleural effusion [Unknown]
  - Myocardial fibrosis [Unknown]
  - Right ventricular dilatation [Unknown]
  - Hyperparathyroidism secondary [Unknown]
  - Dilatation atrial [Unknown]
  - Lymphadenopathy mediastinal [Unknown]

NARRATIVE: CASE EVENT DATE: 20191104
